FAERS Safety Report 17530309 (Version 1)
Quarter: 2020Q1

REPORT INFORMATION
  Report Type: Spontaneous
  Country: GB (occurrence: GB)
  Receive Date: 20200312
  Receipt Date: 20200312
  Transmission Date: 20200409
  Serious: Yes (Life-Threatening)
  Sender: FDA-Public Use
  Company Number: GB-TEVA-2020-GB-1197256

PATIENT
  Age: 5 Year
  Sex: Male
  Weight: 50 kg

DRUGS (3)
  1. SALBUTAMOL [Concomitant]
     Active Substance: ALBUTEROL
     Dosage: ONE OR TWO PUFFS UP TO FOUR TIMES A DAY.
     Route: 055
     Dates: start: 20200113
  2. TRIMETHOPRIM. [Suspect]
     Active Substance: TRIMETHOPRIM
     Dosage: TAKEN AT NIGHT. 50MG/5ML.; 25MG
     Dates: start: 20200122
  3. BECLOMETASONE [Concomitant]
     Active Substance: BECLOMETHASONE DIPROPIONATE
     Dosage: 50MCG
     Dates: start: 20200113

REACTIONS (1)
  - Dermatitis allergic [Unknown]
